FAERS Safety Report 10166718 (Version 2)
Quarter: 2015Q1

REPORT INFORMATION
  Report Type: Spontaneous
  Country: US (occurrence: US)
  Receive Date: 20140512
  Receipt Date: 20150316
  Transmission Date: 20150720
  Serious: Yes (Other)
  Sender: FDA-Public Use
  Company Number: US-SA-2014SA058568

PATIENT
  Age: 58 Year

DRUGS (4)
  1. PLAVIX [Suspect]
     Active Substance: CLOPIDOGREL BISULFATE
     Indication: MIGRAINE
     Route: 048
     Dates: start: 201005, end: 201111
  2. PLAVIX [Suspect]
     Active Substance: CLOPIDOGREL BISULFATE
     Indication: CEREBROVASCULAR ACCIDENT
     Route: 048
     Dates: start: 201005, end: 201111
  3. PLAVIX [Suspect]
     Active Substance: CLOPIDOGREL BISULFATE
     Indication: CEREBROVASCULAR ACCIDENT
     Route: 048
     Dates: start: 200910, end: 201004
  4. PLAVIX [Suspect]
     Active Substance: CLOPIDOGREL BISULFATE
     Indication: MIGRAINE
     Route: 048
     Dates: start: 200910, end: 201004

REACTIONS (8)
  - Appendicectomy [Unknown]
  - Economic problem [Not Recovered/Not Resolved]
  - Gastrointestinal haemorrhage [Recovered/Resolved]
  - Multiple injuries [Not Recovered/Not Resolved]
  - Small intestinal resection [Unknown]
  - Varices oesophageal [Unknown]
  - Hysterectomy [Unknown]
  - Thrombosis [Unknown]

NARRATIVE: CASE EVENT DATE: 20111112
